FAERS Safety Report 18346848 (Version 4)
Quarter: 2020Q4

REPORT INFORMATION
  Report Type: Spontaneous
  Country: US (occurrence: US)
  Receive Date: 20201005
  Receipt Date: 20201109
  Transmission Date: 20210114
  Serious: Yes (Other)
  Sender: FDA-Public Use
  Company Number: US-SA-2020SA266858

PATIENT

DRUGS (1)
  1. LANTUS [Suspect]
     Active Substance: INSULIN GLARGINE
     Indication: TYPE 2 DIABETES MELLITUS
     Dosage: 12-14 UNITS, AT NIGHT
     Route: 065

REACTIONS (3)
  - Diabetes mellitus inadequate control [Unknown]
  - Product quality issue [Unknown]
  - Drug ineffective [Unknown]
